FAERS Safety Report 24748205 (Version 1)
Quarter: 2024Q4

REPORT INFORMATION
  Report Type: Spontaneous
  Country: CN (occurrence: None)
  Receive Date: 20241218
  Receipt Date: 20241218
  Transmission Date: 20250115
  Serious: Yes (Other)
  Sender: ORION
  Company Number: CN-Orion Corporation ORION PHARMA-ENT 2024-0060

PATIENT
  Age: 72 Year
  Sex: Female
  Weight: 60 kg

DRUGS (1)
  1. COMTAN [Suspect]
     Active Substance: ENTACAPONE
     Indication: Parkinsonism
     Dates: start: 20241125, end: 20241127

REACTIONS (3)
  - Anaphylactic reaction [Unknown]
  - Rash erythematous [Recovered/Resolved]
  - Skin exfoliation [Unknown]

NARRATIVE: CASE EVENT DATE: 20241127
